FAERS Safety Report 24698274 (Version 1)
Quarter: 2024Q4

REPORT INFORMATION
  Report Type: Spontaneous
  Country: JP (occurrence: JP)
  Receive Date: 20241204
  Receipt Date: 20241204
  Transmission Date: 20250115
  Serious: Yes (Other)
  Sender: KYOWA
  Company Number: JP-KYOWAKIRIN-2024KK027124

PATIENT

DRUGS (1)
  1. CRYSVITA [Suspect]
     Active Substance: BUROSUMAB-TWZA
     Indication: Hypophosphataemic osteomalacia
     Dosage: 30 MG, 1X/2 WEEKS
     Route: 058
     Dates: start: 202405, end: 202410

REACTIONS (1)
  - Renal impairment [Unknown]

NARRATIVE: CASE EVENT DATE: 20241001
